FAERS Safety Report 7000610-1 (Version None)
Quarter: 2010Q3

REPORT INFORMATION
  Report Type: 
  Country: None (occurrence: None)
  Receive Date: 20100920
  Receipt Date: 20100914
  Transmission Date: 20110219
  Serious: Yes (Death)
  Sender: FDA-Public Use
  Company Number: US-GILEAD-2010-0031720

PATIENT
  Sex: Female
  Weight: 84.898 kg

DRUGS (14)
  1. LETAIRIS [Suspect]
     Indication: PULMONARY ARTERIAL HYPERTENSION
     Route: 048
     Dates: start: 20080415
  2. REVATIO [Concomitant]
  3. LASIX [Concomitant]
  4. METOLAZONE [Concomitant]
  5. BUMEX [Concomitant]
  6. ZYRTEC [Concomitant]
  7. LANTUS [Concomitant]
  8. VALIUM [Concomitant]
  9. ELAVIL [Concomitant]
  10. VICODIN [Concomitant]
  11. COMPAZINE [Concomitant]
  12. PREMARIN [Concomitant]
  13. CELEBREX [Concomitant]
  14. MAG-OXIDE [Concomitant]

REACTIONS (1)
  - PULMONARY ARTERIAL HYPERTENSION [None]
